FAERS Safety Report 17087946 (Version 1)
Quarter: 2019Q4

REPORT INFORMATION
  Report Type: Spontaneous
  Country: US (occurrence: US)
  Receive Date: 20191128
  Receipt Date: 20191128
  Transmission Date: 20200122
  Serious: No
  Sender: FDA-Public Use
  Company Number: US-UCBSA-2018035333

PATIENT
  Age: 13 Year
  Sex: Female
  Weight: 46.71 kg

DRUGS (6)
  1. VIMPAT [Suspect]
     Active Substance: LACOSAMIDE
     Dosage: 7 MG, 2X/DAY (BID)
     Route: 048
     Dates: start: 2018, end: 2018
  2. VIMPAT [Suspect]
     Active Substance: LACOSAMIDE
     Indication: EPILEPSY
     Dosage: 5 MG, 2X/DAY (BID)
     Route: 048
     Dates: start: 2018, end: 2018
  3. VIMPAT [Suspect]
     Active Substance: LACOSAMIDE
     Dosage: 10 MG, 2X/DAY (BID)
     Route: 048
     Dates: start: 2018, end: 2018
  4. VIMPAT [Suspect]
     Active Substance: LACOSAMIDE
     Dosage: 8 MG, 2X/DAY (BID)
     Route: 048
     Dates: start: 201808
  5. MELATONIN [Suspect]
     Active Substance: MELATONIN
     Indication: SLEEP DISORDER
     Dosage: UNK
  6. OXCARBAZEPINE. [Concomitant]
     Active Substance: OXCARBAZEPINE
     Indication: EPILEPSY
     Dosage: UNK

REACTIONS (5)
  - Intentional product misuse [Unknown]
  - Visual impairment [Not Recovered/Not Resolved]
  - Pollakiuria [Recovering/Resolving]
  - Dyskinesia [Not Recovered/Not Resolved]
  - Feeling abnormal [Recovered/Resolved]

NARRATIVE: CASE EVENT DATE: 2018
